FAERS Safety Report 8165246-8 (Version None)
Quarter: 2012Q1

REPORT INFORMATION
  Report Type: 
  Country: None (occurrence: None)
  Receive Date: 20120222
  Receipt Date: 20120222
  Transmission Date: 20120608
  Serious: Yes (Life-Threatening, Hospitalization)
  Sender: FDA-Public Use
  Company Number: None

PATIENT
  Age: 60 Year
  Sex: Female
  Weight: 54.8852 kg

DRUGS (3)
  1. GLYBURIDE [Suspect]
     Indication: HEPATITIS
     Dosage: 1 TAB. A DAY AFTER BREAKFAST
     Dates: start: 19800101, end: 20100601
  2. NOVOLOG [Concomitant]
  3. LANTUS [Concomitant]

REACTIONS (6)
  - OCULAR ICTERUS [None]
  - PRURITUS GENERALISED [None]
  - ASTHENIA [None]
  - MUSCLE TIGHTNESS [None]
  - DECREASED APPETITE [None]
  - YELLOW SKIN [None]
